FAERS Safety Report 5067798-3 (Version None)
Quarter: 2006Q3

REPORT INFORMATION
  Report Type: 
  Country: None (occurrence: None)
  Receive Date: 20060802
  Receipt Date: 20060725
  Transmission Date: 20061208
  Serious: Yes (Hospitalization)
  Sender: FDA-Public Use
  Company Number: FR-GLAXOSMITHKLINE-B0432234A

PATIENT
  Age: 73 Year
  Sex: Female

DRUGS (15)
  1. AUGMENTIN '125' [Suspect]
     Dosage: 1G THREE TIMES PER DAY
     Route: 048
     Dates: start: 20060506, end: 20060508
  2. CONTRAMAL [Concomitant]
     Dosage: 100MG TWICE PER DAY
     Route: 065
  3. RIVOTRIL DROPS [Concomitant]
     Dosage: 15DROP PER DAY
     Route: 048
  4. NOCTRAN [Concomitant]
     Dosage: 10MG PER DAY
     Route: 065
  5. IKOREL [Concomitant]
     Dosage: 10MG TWICE PER DAY
     Route: 065
  6. TENORMIN [Concomitant]
     Dosage: 50MG TWICE PER DAY
     Route: 065
  7. AMLODIPINE BESYLATE [Concomitant]
     Dosage: 5MG PER DAY
     Route: 065
  8. LASILIX [Concomitant]
     Dosage: 100MG PER DAY
     Route: 065
  9. COVERSYL [Concomitant]
     Dosage: 4MG PER DAY
     Route: 065
  10. DIAMICRON [Concomitant]
     Dosage: 30MG PER DAY
     Route: 065
  11. OMEPRAZOLE [Concomitant]
     Dosage: 20MG PER DAY
     Route: 065
  12. ZALDIAR [Concomitant]
     Dosage: 4UNIT PER DAY
     Route: 065
  13. TRANSIPEG [Concomitant]
     Dosage: 2UNIT PER DAY
     Route: 065
  14. COLCHICINE [Concomitant]
     Dosage: 1UNIT PER DAY
     Route: 065
  15. KALEORID LP [Concomitant]
     Dosage: 600MG THREE TIMES PER DAY
     Route: 065

REACTIONS (6)
  - ANGIONEUROTIC OEDEMA [None]
  - DERMATITIS ALLERGIC [None]
  - DYSPNOEA [None]
  - FACE OEDEMA [None]
  - OXYGEN SATURATION DECREASED [None]
  - PRURITUS [None]
